FAERS Safety Report 8866403 (Version 2)
Quarter: 2013Q1

REPORT INFORMATION
  Report Type: Spontaneous
  Country: IT (occurrence: IT)
  Receive Date: 20121025
  Receipt Date: 20130307
  Transmission Date: 20140127
  Serious: Yes (Hospitalization)
  Sender: FDA-Public Use
  Company Number: IT-ABBOTT-12P-083-0996734-00

PATIENT
  Age: 69 Year
  Sex: Male

DRUGS (6)
  1. BRUFEN [Suspect]
     Indication: BACK PAIN
     Dates: start: 20120921, end: 20120925
  2. OKI [Suspect]
     Indication: BACK PAIN
     Route: 048
     Dates: start: 20120907, end: 20120920
  3. TRIATEC [Concomitant]
     Indication: PRODUCT USED FOR UNKNOWN INDICATION
     Route: 048
  4. PRADIF [Concomitant]
     Indication: PRODUCT USED FOR UNKNOWN INDICATION
  5. GALVUS [Concomitant]
     Indication: PRODUCT USED FOR UNKNOWN INDICATION
  6. GLUCOBAY [Concomitant]
     Indication: PRODUCT USED FOR UNKNOWN INDICATION

REACTIONS (1)
  - Rectal haemorrhage [Unknown]
